FAERS Safety Report 10142101 (Version 2)
Quarter: 2014Q2

REPORT INFORMATION
  Report Type: Report from Study
  Country: US (occurrence: US)
  Receive Date: 20140429
  Receipt Date: 20140522
  Transmission Date: 20141212
  Serious: Yes (Other)
  Sender: FDA-Public Use
  Company Number: PHEH2014US008451

PATIENT
  Sex: Male

DRUGS (3)
  1. NEORAL [Suspect]
     Indication: ORGAN TRANSPLANT
     Dosage: 100 MG, BID
     Route: 048
  2. NEORAL [Suspect]
     Indication: DRY EYE
     Dosage: 100 MG, QD
     Route: 048
  3. NEORAL [Suspect]
     Indication: CORNEAL OEDEMA

REACTIONS (3)
  - Visual acuity reduced [Unknown]
  - Diabetes mellitus [Unknown]
  - Hypoglycaemia [Unknown]
